FAERS Safety Report 7859508-9 (Version None)
Quarter: 2011Q4

REPORT INFORMATION
  Report Type: 
  Country: None (occurrence: None)
  Receive Date: 20111027
  Receipt Date: 20111025
  Transmission Date: 20120403
  Serious: Yes (Other)
  Sender: FDA-Public Use
  Company Number: US-PFIZER INC-2011260218

PATIENT
  Sex: Female
  Weight: 61.224 kg

DRUGS (1)
  1. XALATAN [Suspect]
     Indication: INTRAOCULAR PRESSURE INCREASED
     Dosage: UNK, 1X/DAY
     Route: 047

REACTIONS (3)
  - GLAUCOMA [None]
  - OPTIC NERVE DISORDER [None]
  - DRY EYE [None]
